FAERS Safety Report 5499239-6 (Version None)
Quarter: 2007Q4

REPORT INFORMATION
  Report Type: 
  Country: None (occurrence: None)
  Receive Date: 20071026
  Receipt Date: 20071018
  Transmission Date: 20080405
  Serious: Yes (Other)
  Sender: FDA-Public Use
  Company Number: US-JNJFOC-20070904513

PATIENT
  Age: 31 Year
  Sex: Male
  Weight: 80.29 kg

DRUGS (4)
  1. IMODIUM A-D [Suspect]
     Indication: DIARRHOEA
  2. IMODIUM A-D [Suspect]
     Indication: CROHN'S DISEASE
     Dosage: UP TO 8MG DAILY
  3. ASACOL [Concomitant]
     Indication: CROHN'S DISEASE
  4. DRUG UNKNOWN [Concomitant]
     Indication: CROHN'S DISEASE

REACTIONS (5)
  - ANURIA [None]
  - ASTHENIA [None]
  - CLOSTRIDIAL INFECTION [None]
  - DEHYDRATION [None]
  - INFLUENZA LIKE ILLNESS [None]
